FAERS Safety Report 10727848 (Version 4)
Quarter: 2015Q1

REPORT INFORMATION
  Report Type: Spontaneous
  Country: CH (occurrence: CH)
  Receive Date: 20150121
  Receipt Date: 20150331
  Transmission Date: 20150721
  Serious: Yes (Hospitalization, Other)
  Sender: FDA-Public Use
  Company Number: CH-BAYER-2015-003151

PATIENT
  Age: 55 Year
  Sex: Male

DRUGS (20)
  1. MORPHINE [Concomitant]
     Active Substance: MORPHINE
     Indication: PAIN
     Dosage: 1 MG (5 U, MAX 30 U FOR 24 HOURS)
  2. ASPIRIN CARDIO [Concomitant]
     Active Substance: ASPIRIN
     Indication: ANTIPLATELET THERAPY
     Dosage: 100 MG, QD (1-0-0-0)
  3. BENERVA [Concomitant]
     Active Substance: THIAMINE
     Dosage: 300 MG, QD (1-0-0-0)
  4. TEMESTA [Concomitant]
     Active Substance: LORAZEPAM
     Indication: PANIC ATTACK
     Dosage: 1 MG, QD (0-0-0-1)
  5. XOFIGO [Suspect]
     Active Substance: RADIUM RA-223 DICHLORIDE
     Indication: METASTASES TO BONE
     Dosage: UNK
     Route: 042
     Dates: start: 20150213, end: 20150213
  6. VITAMIN D [Concomitant]
     Active Substance: CHOLECALCIFEROL
     Dosage: 20-0-0-0
  7. SAROTEN [Concomitant]
     Active Substance: AMITRIPTYLINE
     Indication: ANTIDEPRESSANT THERAPY
  8. PANTOPRAZOLE [Concomitant]
     Active Substance: PANTOPRAZOLE SODIUM
     Indication: PROPHYLAXIS AGAINST GASTROINTESTINAL ULCER
     Dosage: 40 MG, QD (1-0-0-0)
  9. CALCIUM [Concomitant]
     Active Substance: CALCIUM
     Dosage: 1000 MG, QD (1-0-0-0)
  10. MAGNESIUM [Concomitant]
     Active Substance: MAGNESIUM
     Dosage: 1-0-0-0
  11. DUROGESIC [Concomitant]
     Active Substance: FENTANYL
     Indication: PAIN
     Dosage: 75 ?G, EVERY 72 HOURS CHANGE
  12. MOTILIUM [Concomitant]
     Active Substance: DOMPERIDONE
     Indication: NAUSEA
  13. ZOLADEX [Concomitant]
     Active Substance: GOSERELIN ACETATE
     Dosage: UNK
     Dates: start: 201211
  14. NAPROXEN. [Concomitant]
     Active Substance: NAPROXEN
     Indication: PAIN
     Dosage: 500 MG, BID (1-0-1-0)
  15. REMERON [Concomitant]
     Active Substance: MIRTAZAPINE
     Indication: PAIN
     Dosage: 30 MG, QD (0-0-0-1)
  16. SAROTEN [Concomitant]
     Active Substance: AMITRIPTYLINE
     Indication: PAIN
     Dosage: 25 MG, QD (0-0-1-0)
  17. NOVALGIN [Concomitant]
     Active Substance: METAMIZOLE SODIUM
     Indication: PAIN
     Dosage: 500 MG (1 TABLET, MAX 6 FOR 24 HOURS)
  18. ZYTIGA [Concomitant]
     Active Substance: ABIRATERONE ACETATE
  19. XOFIGO [Suspect]
     Active Substance: RADIUM RA-223 DICHLORIDE
     Indication: PROSTATE CANCER STAGE IV
     Dosage: 6.7 MBQ, ONCE
     Route: 042
     Dates: start: 20141128, end: 20141128
  20. SIMCORA [Concomitant]
     Active Substance: SIMVASTATIN
     Dosage: 40 MG, QD (1-0-0-0)

REACTIONS (5)
  - Blindness [None]
  - General physical health deterioration [None]
  - Dermatitis bullous [None]
  - Rash pruritic [None]
  - Retinal haemorrhage [None]
